FAERS Safety Report 22316748 (Version 2)
Quarter: 2023Q2

REPORT INFORMATION
  Report Type: Report from Study
  Country: US (occurrence: US)
  Receive Date: 20230513
  Receipt Date: 20230517
  Transmission Date: 20230721
  Serious: No
  Sender: FDA-Public Use
  Company Number: US-002147023-NVSC2023US108039

PATIENT
  Age: 84 Year
  Sex: Male

DRUGS (1)
  1. XIIDRA [Suspect]
     Active Substance: LIFITEGRAST
     Indication: Dry eye
     Dosage: UNK UNK, BID (INSTILLING DROPS IN EACH EYE UNTIL GONE)
     Route: 047
     Dates: start: 20210513

REACTIONS (1)
  - Vision blurred [Not Recovered/Not Resolved]
